FAERS Safety Report 17037866 (Version 1)
Quarter: 2019Q4

REPORT INFORMATION
  Report Type: Report from Study
  Country: CA (occurrence: CA)
  Receive Date: 20191115
  Receipt Date: 20191115
  Transmission Date: 20200122
  Serious: Yes (Hospitalization, Other)
  Sender: FDA-Public Use
  Company Number: CA-PFIZER INC-2019489241

PATIENT
  Age: 39 Year
  Sex: Female

DRUGS (3)
  1. LEVOFLOXACIN. [Suspect]
     Active Substance: LEVOFLOXACIN
     Indication: ARTHRITIS BACTERIAL
     Dosage: UNK
  2. REMICADE [Suspect]
     Active Substance: INFLIXIMAB
     Indication: ANKYLOSING SPONDYLITIS
     Dosage: 400 MG, CYCLIC (EVERY 8 WEEKS)
     Route: 042
  3. VANCOMYCIN HCL [Suspect]
     Active Substance: VANCOMYCIN HYDROCHLORIDE
     Indication: ARTHRITIS BACTERIAL
     Dosage: UNK
     Route: 042

REACTIONS (4)
  - Urticaria [Recovering/Resolving]
  - Arthritis bacterial [Recovering/Resolving]
  - Hypersensitivity [Recovering/Resolving]
  - Lip swelling [Recovering/Resolving]
